FAERS Safety Report 7977915-0 (Version None)
Quarter: 2011Q4

REPORT INFORMATION
  Report Type: 
  Country: None (occurrence: None)
  Receive Date: 20111214
  Receipt Date: 20111201
  Transmission Date: 20120403
  Serious: Yes (Other)
  Sender: FDA-Public Use
  Company Number: US-BIOGENIDEC-2011BI045962

PATIENT
  Age: 48 Year
  Sex: Male

DRUGS (2)
  1. TYSABRI [Suspect]
     Route: 042
     Dates: start: 20070914, end: 20090814
  2. TYSABRI [Suspect]
     Indication: MULTIPLE SCLEROSIS
     Route: 042
     Dates: start: 20110321

REACTIONS (3)
  - HIP ARTHROPLASTY [None]
  - DRUG INTOLERANCE [None]
  - MULTIPLE SCLEROSIS RELAPSE [None]
